FAERS Safety Report 22311297 (Version 1)
Quarter: 2023Q2

REPORT INFORMATION
  Report Type: Spontaneous
  Country: US (occurrence: US)
  Receive Date: 20230511
  Receipt Date: 20230511
  Transmission Date: 20230722
  Serious: No
  Sender: FDA-Public Use
  Company Number: US-BAYER-2023A065821

PATIENT

DRUGS (1)
  1. NUBEQA [Suspect]
     Active Substance: DAROLUTAMIDE
     Dosage: UNK
     Dates: start: 20230506

REACTIONS (1)
  - Pain in extremity [None]

NARRATIVE: CASE EVENT DATE: 20230510
